FAERS Safety Report 7980621-X (Version None)
Quarter: 2011Q4

REPORT INFORMATION
  Report Type: 
  Country: None (occurrence: None)
  Receive Date: 20111214
  Receipt Date: 20111207
  Transmission Date: 20120403
  Serious: Yes (Hospitalization, Other)
  Sender: FDA-Public Use
  Company Number: JP-CEPHALON-2011004805

PATIENT
  Sex: Female
  Weight: 53 kg

DRUGS (11)
  1. SENNA LEAF [Concomitant]
     Dates: end: 20110124
  2. GRANISETRON HCL [Concomitant]
     Dates: start: 20110111, end: 20110316
  3. POVIDONE IODINE [Concomitant]
     Dates: end: 20110214
  4. ACYCLOVIR [Concomitant]
  5. TEPRENONE [Concomitant]
  6. LEVOFLOXACIN [Concomitant]
     Dates: start: 20110118, end: 20110118
  7. SULFAMETHOXAZOLE AND TRIMETHOPRIM [Concomitant]
     Dates: start: 20110111
  8. HEPARIN SODIUM [Concomitant]
  9. BROTIZOLAM [Concomitant]
  10. BENDAMUSTINE HCL [Suspect]
     Indication: B-CELL LYMPHOMA
     Route: 042
     Dates: start: 20110111
  11. ACETAMINOPHEN [Concomitant]
     Dates: end: 20110118

REACTIONS (3)
  - LYMPHOCYTE COUNT DECREASED [None]
  - ANGIOPATHY [None]
  - NEUTROPHIL COUNT DECREASED [None]
